FAERS Safety Report 10084943 (Version 1)
Quarter: 2014Q2

REPORT INFORMATION
  Report Type: Spontaneous
  Country: GB (occurrence: GB)
  Receive Date: 20140417
  Receipt Date: 20140417
  Transmission Date: 20141212
  Serious: Yes (Life-Threatening)
  Sender: FDA-Public Use
  Company Number: GB-ACTAVIS-2014-07403

PATIENT
  Age: 42 Year
  Sex: Female
  Weight: 78 kg

DRUGS (1)
  1. DICLOFENAC (UNKNOWN) [Suspect]
     Indication: PROCEDURAL COMPLICATION
     Dosage: 50 MG, UNKNOWN; INTRA-OPERATIVELY.
     Route: 042
     Dates: start: 20130924, end: 20130924

REACTIONS (1)
  - Anaphylactic reaction [Recovered/Resolved]
